FAERS Safety Report 24157618 (Version 11)
Quarter: 2025Q3

REPORT INFORMATION
  Report Type: Spontaneous
  Country: US (occurrence: US)
  Receive Date: 20240731
  Receipt Date: 20250707
  Transmission Date: 20251020
  Serious: Yes (Other)
  Sender: PFIZER
  Company Number: US-PFIZER INC-PV202400099566

PATIENT
  Age: 61 Year
  Sex: Female

DRUGS (26)
  1. IBRANCE [Suspect]
     Active Substance: PALBOCICLIB
     Indication: Breast cancer female
     Route: 048
     Dates: start: 20240718
  2. IBRANCE [Suspect]
     Active Substance: PALBOCICLIB
     Route: 048
  3. IBRANCE [Suspect]
     Active Substance: PALBOCICLIB
     Route: 048
     Dates: start: 20240718
  4. ACYCLOVIR [Concomitant]
     Active Substance: ACYCLOVIR
  5. AMLODIPINE [Concomitant]
     Active Substance: AMLODIPINE BESYLATE
  6. ATORVASTATIN [Concomitant]
     Active Substance: ATORVASTATIN
  7. DULOXETINE [Concomitant]
     Active Substance: DULOXETINE
  8. ELIQUIS [Concomitant]
     Active Substance: APIXABAN
  9. ESTRADIOL [Concomitant]
     Active Substance: ESTRADIOL
  10. FEMARA [Concomitant]
     Active Substance: LETROZOLE
  11. FENOFIBRATE [Concomitant]
     Active Substance: FENOFIBRATE
  12. FERAHEME [Concomitant]
     Active Substance: FERUMOXYTOL NON-STOICHIOMETRIC MAGNETITE
  13. GLIMEPIRIDE [Concomitant]
     Active Substance: GLIMEPIRIDE
  14. KISQALI [Concomitant]
     Active Substance: RIBOCICLIB SUCCINATE
  15. LEVOTHYROXINE [Concomitant]
     Active Substance: LEVOTHYROXINE
  16. LOSARTAN [Concomitant]
     Active Substance: LOSARTAN
  17. LOSARTAN POTASSIUM [Concomitant]
     Active Substance: LOSARTAN POTASSIUM
  18. METFORMIN [Concomitant]
     Active Substance: METFORMIN HYDROCHLORIDE
  19. MOUNJARO [Concomitant]
     Active Substance: TIRZEPATIDE
  20. NEBIVOLOL [Concomitant]
     Active Substance: NEBIVOLOL
  21. NITROFURANTOIN [Concomitant]
     Active Substance: NITROFURANTOIN
  22. ONDANSETRON [Concomitant]
     Active Substance: ONDANSETRON
  23. PROLIA [Concomitant]
     Active Substance: DENOSUMAB
  24. TRAMADOL HCL [Concomitant]
     Active Substance: TRAMADOL HYDROCHLORIDE
  25. TRAMADOL [Concomitant]
     Active Substance: TRAMADOL
  26. LIOTHYRONINE [Concomitant]
     Active Substance: LIOTHYRONINE

REACTIONS (21)
  - Neutropenia [Unknown]
  - Leukopenia [Unknown]
  - Anaemia [Unknown]
  - Fatigue [Not Recovered/Not Resolved]
  - Dizziness [Unknown]
  - Disorientation [Unknown]
  - Headache [Unknown]
  - Amnesia [Unknown]
  - Arthralgia [Not Recovered/Not Resolved]
  - Myalgia [Not Recovered/Not Resolved]
  - Dry skin [Unknown]
  - Nerve injury [Unknown]
  - Alopecia [Unknown]
  - Burning sensation [Unknown]
  - Hypoaesthesia [Unknown]
  - Memory impairment [Unknown]
  - Pain [Unknown]
  - Paraesthesia [Unknown]
  - Nausea [Unknown]
  - Dyspnoea [Unknown]
  - Vomiting [Unknown]

NARRATIVE: CASE EVENT DATE: 20240101
